FAERS Safety Report 20181412 (Version 1)
Quarter: 2021Q4

REPORT INFORMATION
  Report Type: Spontaneous
  Country: US (occurrence: None)
  Receive Date: 20211213
  Receipt Date: 20211213
  Transmission Date: 20220304
  Serious: No
  Sender: FDA-Public Use
  Company Number: None

PATIENT
  Age: 21 Year
  Sex: Male

DRUGS (1)
  1. CANNABIDIOL\HERBALS [Suspect]
     Active Substance: CANNABIDIOL\HERBALS

REACTIONS (6)
  - Abnormal behaviour [None]
  - Scratch [None]
  - Skin laceration [None]
  - Feeling abnormal [None]
  - Lethargy [None]
  - Histrionic personality disorder [None]

NARRATIVE: CASE EVENT DATE: 20210919
